FAERS Safety Report 4530716-8 (Version None)
Quarter: 2004Q4

REPORT INFORMATION
  Report Type: 
  Country: None (occurrence: None)
  Receive Date: 20041217
  Receipt Date: 20041119
  Transmission Date: 20050328
  Serious: Yes (Hospitalization)
  Sender: FDA-Public Use
  Company Number: FR-GLAXOSMITHKLINE-B0358120A

PATIENT
  Age: 61 Year
  Sex: Female

DRUGS (13)
  1. ZOPHREN [Suspect]
     Dosage: 8MG PER DAY
     Route: 042
     Dates: start: 20041102, end: 20041102
  2. CARBOPLATINE [Suspect]
     Dosage: 510MG PER DAY
     Route: 042
     Dates: start: 20041102, end: 20041102
  3. TRANXENE [Suspect]
     Dosage: 20MG PER DAY
     Route: 042
     Dates: start: 20041102, end: 20041102
  4. RANITIDINE [Suspect]
     Dosage: 100MG PER DAY
     Route: 042
     Dates: start: 20041102, end: 20041102
  5. SOLU-MEDROL [Suspect]
     Dosage: 80MG PER DAY
     Route: 042
     Dates: start: 20041102, end: 20041102
  6. TAXOL [Suspect]
     Dosage: 234MG PER DAY
     Route: 042
     Dates: start: 20041102, end: 20041102
  7. BECOTIDE [Concomitant]
     Route: 055
  8. LEXOMIL [Concomitant]
     Dosage: .25UNIT THREE TIMES PER DAY
     Route: 065
  9. DAFALGAN [Concomitant]
     Dosage: 6UNIT PER DAY
     Route: 065
  10. SMECTA [Concomitant]
     Dosage: 3UNIT PER DAY
     Route: 065
  11. STILNOX [Concomitant]
     Dosage: 1UNIT PER DAY
     Route: 065
  12. IMODIUM [Concomitant]
     Route: 065
  13. POLARAMINE [Concomitant]
     Route: 042
     Dates: start: 20041102, end: 20041102

REACTIONS (3)
  - ATRIOVENTRICULAR BLOCK [None]
  - ATRIOVENTRICULAR BLOCK COMPLETE [None]
  - SYNCOPE [None]
